FAERS Safety Report 9553004 (Version 4)
Quarter: 2013Q4

REPORT INFORMATION
  Report Type: Spontaneous
  Country: AU (occurrence: AU)
  Receive Date: 20130925
  Receipt Date: 20131127
  Transmission Date: 20140711
  Serious: Yes (Death, Hospitalization, Other)
  Sender: FDA-Public Use
  Company Number: AU-009507513-1003USA02018

PATIENT
  Age: 62 Year
  Sex: Female

DRUGS (6)
  1. VYTORIN [Suspect]
     Dosage: 10/20
     Route: 048
     Dates: start: 2007
  2. ATORVASTATIN [Interacting]
     Dosage: 20 MG, UNK
     Dates: start: 2004, end: 2007
  3. FLUOXETINE [Interacting]
     Dosage: 40 MG, QD
  4. VERAPAMIL [Interacting]
     Dosage: UNK
  5. METFORMIN [Concomitant]
     Indication: TYPE 2 DIABETES MELLITUS
  6. GLICLAZIDE [Concomitant]
     Indication: TYPE 2 DIABETES MELLITUS

REACTIONS (6)
  - Respiratory failure [Fatal]
  - Blood creatinine increased [Unknown]
  - Myositis [Fatal]
  - Vitamin D deficiency [Unknown]
  - Quadriparesis [Unknown]
  - Drug interaction [Unknown]
